FAERS Safety Report 8901211 (Version 2)
Quarter: 2013Q3

REPORT INFORMATION
  Report Type: Spontaneous
  Country: CA (occurrence: CA)
  Receive Date: 20121109
  Receipt Date: 20130722
  Transmission Date: 20140515
  Serious: Yes (Other)
  Sender: FDA-Public Use
  Company Number: CA-ROCHE-1153852

PATIENT
  Sex: Female

DRUGS (3)
  1. XOLAIR [Suspect]
     Indication: ASTHMA
     Route: 058
     Dates: start: 20090330
  2. XOLAIR [Suspect]
     Route: 058
     Dates: start: 20091207
  3. XOLAIR [Suspect]
     Route: 058
     Dates: start: 20081208

REACTIONS (2)
  - Arthritis [Unknown]
  - Fatigue [Unknown]
